FAERS Safety Report 8281417-4 (Version None)
Quarter: 2012Q2

REPORT INFORMATION
  Report Type: 
  Country: None (occurrence: None)
  Receive Date: 20120411
  Receipt Date: 20120411
  Transmission Date: 20120825
  Serious: Yes (Death)
  Sender: FDA-Public Use
  Company Number: None

PATIENT
  Age: 75 Year
  Sex: Male
  Weight: 112 kg

DRUGS (1)
  1. DABIGATRAN 150 MG BOEHRINGER INGELHEIM [Suspect]
     Dosage: 150 MG BID PO
     Route: 048
     Dates: start: 20120126, end: 20120206

REACTIONS (10)
  - ACUTE RESPIRATORY FAILURE [None]
  - RENAL FAILURE [None]
  - METABOLIC ACIDOSIS [None]
  - HAEMORRHAGE [None]
  - DRUG DOSE OMISSION [None]
  - COAGULOPATHY [None]
  - DISSEMINATED INTRAVASCULAR COAGULATION [None]
  - AORTIC DISSECTION [None]
  - HAEMODIALYSIS [None]
  - CARDIOGENIC SHOCK [None]
